FAERS Safety Report 24241433 (Version 1)
Quarter: 2024Q3

REPORT INFORMATION
  Report Type: Spontaneous
  Country: CN (occurrence: CN)
  Receive Date: 20240823
  Receipt Date: 20240823
  Transmission Date: 20241016
  Serious: Yes (Other)
  Sender: CHEPLAPHARM
  Company Number: CN-CHEPLA-2024010706

PATIENT
  Age: 48 Year
  Sex: Male
  Weight: 68 kg

DRUGS (3)
  1. CAPECITABINE [Suspect]
     Active Substance: CAPECITABINE
     Indication: Colon cancer
     Dosage: APPROVAL NO. GYZZ H20073024/D1-7, Q14D?DAILY DOSE: 2000 MILLIGRAM
     Route: 048
     Dates: start: 20240219, end: 20240226
  2. IRINOTECAN HYDROCHLORIDE [Suspect]
     Active Substance: IRINOTECAN HYDROCHLORIDE
     Indication: Colon cancer
     Dosage: APPROVAL NO. H20120529/ROA: IV DRIP?DAILY DOSE: 270 MILLIGRAM
     Route: 042
     Dates: start: 20240219, end: 20240219
  3. CETUXIMAB [Suspect]
     Active Substance: CETUXIMAB
     Indication: Colon cancer
     Dosage: APPROVAL NO. S20171039/ROA: IV DRIP?DAILY DOSE: 900 MILLIGRAM
     Route: 042
     Dates: start: 20240219, end: 20240219

REACTIONS (1)
  - Intestinal obstruction [Recovering/Resolving]

NARRATIVE: CASE EVENT DATE: 20240304
